FAERS Safety Report 7617947-5 (Version None)
Quarter: 2011Q3

REPORT INFORMATION
  Report Type: 
  Country: None (occurrence: None)
  Receive Date: 20110718
  Receipt Date: 20110705
  Transmission Date: 20111222
  Serious: Yes (Death)
  Sender: FDA-Public Use
  Company Number: PHHY2011NL60222

PATIENT
  Sex: Male

DRUGS (2)
  1. ZOMETA [Suspect]
     Indication: URETERIC CANCER METASTATIC
     Dosage: 4 MG/5ML
  2. ZOMETA [Suspect]
     Dosage: 4 MG/5ML
     Dates: start: 20110610

REACTIONS (1)
  - DEATH [None]
